FAERS Safety Report 19960529 (Version 1)
Quarter: 2021Q4

REPORT INFORMATION
  Report Type: Spontaneous
  Country: US (occurrence: US)
  Receive Date: 20211015
  Receipt Date: 20211015
  Transmission Date: 20220303
  Serious: No
  Sender: FDA-Public Use
  Company Number: US-BIOMARINAP-US-2021-139068

PATIENT
  Sex: Female

DRUGS (4)
  1. PALYNZIQ [Suspect]
     Active Substance: PEGVALIASE-PQPZ
     Indication: Phenylketonuria
     Dosage: 20 MILLIGRAM, QD
     Route: 058
  2. PALYNZIQ [Suspect]
     Active Substance: PEGVALIASE-PQPZ
     Dosage: 10 MILLIGRAM, BID
     Route: 058
  3. B12 active [Concomitant]
     Indication: Product used for unknown indication
     Dosage: 1000 MICROGRAM
  4. NEXPLANON [Concomitant]
     Active Substance: ETONOGESTREL
     Indication: Product used for unknown indication
     Dosage: 68 MILLIGRAM

REACTIONS (5)
  - Pain [Recovering/Resolving]
  - Weight increased [Unknown]
  - Amino acid level increased [Unknown]
  - Treatment noncompliance [Unknown]
  - Pruritus [Unknown]
